FAERS Safety Report 6937772-8 (Version None)
Quarter: 2010Q3

REPORT INFORMATION
  Report Type: 
  Country: None (occurrence: None)
  Receive Date: 20100823
  Receipt Date: 20100823
  Transmission Date: 20110219
  Serious: No
  Sender: FDA-Public Use
  Company Number: None

PATIENT
  Sex: Male
  Weight: 133.8111 kg

DRUGS (9)
  1. JANUVIA [Suspect]
     Indication: DIABETES MELLITUS
     Dosage: 1/2 TABLET PO QD
     Route: 048
     Dates: start: 20100716, end: 20100726
  2. JANUVIA [Suspect]
     Indication: DIABETES MELLITUS
     Dosage: 1/2 TABLET PO QD
     Route: 048
     Dates: start: 20100803, end: 20100820
  3. ATENOLOL [Concomitant]
  4. DIOVAN [Concomitant]
  5. LIPITOR [Concomitant]
  6. GLYBURIDE [Concomitant]
  7. ACTOS [Concomitant]
  8. LANTUS [Concomitant]
  9. ASPIRIN [Concomitant]

REACTIONS (2)
  - LIP BLISTER [None]
  - LIP SWELLING [None]
